FAERS Safety Report 7743552-6 (Version None)
Quarter: 2011Q3

REPORT INFORMATION
  Report Type: 
  Country: None (occurrence: None)
  Receive Date: 20110912
  Receipt Date: 20110906
  Transmission Date: 20111222
  Serious: Yes (Death, Other)
  Sender: FDA-Public Use
  Company Number: JP-PFIZER INC-2011156443

PATIENT
  Age: 69 Year
  Sex: Male

DRUGS (5)
  1. POTASSIUM CHLORIDE [Concomitant]
     Indication: PROPHYLAXIS
     Dosage: 1500 ML, 1X/DAY
     Route: 041
     Dates: start: 20110222, end: 20110302
  2. ZANTAC [Concomitant]
     Indication: GASTRODUODENAL ULCER
     Dosage: 75 MG, 1X/DAY
     Route: 041
     Dates: start: 20110222, end: 20110302
  3. ZOSYN [Suspect]
     Indication: CYSTITIS
     Dosage: 4.5 G, 3X/DAY
     Route: 041
     Dates: start: 20110222, end: 20110302
  4. PANTOL [Concomitant]
     Dosage: 1000 MG, 1X/DAY
     Route: 041
     Dates: start: 20110222
  5. LASIX [Concomitant]
     Indication: PROPHYLAXIS
     Dosage: 20 MG, 1X/DAY
     Route: 041
     Dates: start: 20110228, end: 20110302

REACTIONS (3)
  - BRAIN STEM INFARCTION [None]
  - RENAL FAILURE [None]
  - HEPATIC FAILURE [None]
